FAERS Safety Report 9007168 (Version 3)
Quarter: 2020Q1

REPORT INFORMATION
  Report Type: Spontaneous
  Country: US (occurrence: US)
  Receive Date: 20130110
  Receipt Date: 20200106
  Transmission Date: 20200409
  Serious: No
  Sender: FDA-Public Use
  Company Number: US-PFIZER INC-2013011514

PATIENT
  Age: 73 Year
  Sex: Female
  Weight: 77 kg

DRUGS (8)
  1. LYRICA [Suspect]
     Active Substance: PREGABALIN
     Dosage: 200 MG, 1X/DAY
     Route: 048
  2. SIMVASTATIN. [Concomitant]
     Active Substance: SIMVASTATIN
     Indication: BLOOD CHOLESTEROL INCREASED
     Dosage: UNK
  3. VITAMIN B [Concomitant]
     Active Substance: VITAMIN B
     Dosage: UNK
  4. LYRICA [Suspect]
     Active Substance: PREGABALIN
     Indication: FIBROMYALGIA
     Dosage: 50 MG, 1X/DAY
     Route: 048
     Dates: start: 20120508, end: 201211
  5. ARIMIDEX [Concomitant]
     Active Substance: ANASTROZOLE
     Indication: BREAST CANCER FEMALE
     Dosage: 1 MG, 1X/DAY
  6. GLIMEPIRIDE. [Concomitant]
     Active Substance: GLIMEPIRIDE
     Indication: DIABETES MELLITUS
     Dosage: UNK
  7. VITAMIN B12 [Concomitant]
     Active Substance: CYANOCOBALAMIN
     Dosage: UNK
  8. ZOLOFT [Concomitant]
     Active Substance: SERTRALINE HYDROCHLORIDE
     Dosage: UNK

REACTIONS (2)
  - Dizziness [Unknown]
  - Pain [Unknown]

NARRATIVE: CASE EVENT DATE: 2012
